FAERS Safety Report 6571557-X (Version None)
Quarter: 2010Q1

REPORT INFORMATION
  Report Type: 
  Country: None (occurrence: None)
  Receive Date: 20100205
  Receipt Date: 20100127
  Transmission Date: 20100710
  Serious: Yes (Other)
  Sender: FDA-Public Use
  Company Number: SE-JNJFOC-20100201826

PATIENT
  Sex: Female

DRUGS (1)
  1. IPREN 400 MG [Suspect]
     Indication: TOOTH EXTRACTION

REACTIONS (2)
  - HALLUCINATION [None]
  - INCORRECT DOSE ADMINISTERED [None]
